FAERS Safety Report 18002392 (Version 1)
Quarter: 2020Q3

REPORT INFORMATION
  Report Type: Spontaneous
  Country: US (occurrence: US)
  Receive Date: 20200709
  Receipt Date: 20200709
  Transmission Date: 20201103
  Serious: Yes (Hospitalization)
  Sender: FDA-Public Use
  Company Number: US-MYLANLABS-2020M1062805

PATIENT
  Age: 56 Year
  Sex: Female

DRUGS (1)
  1. FLUOROURACIL. [Suspect]
     Active Substance: FLUOROURACIL
     Indication: COLORECTAL CANCER METASTATIC
     Dosage: 400 MILLIGRAM/SQ. METER
     Route: 042

REACTIONS (16)
  - Atrial fibrillation [Recovered/Resolved]
  - Hypotension [Recovered/Resolved]
  - Ejection fraction decreased [Recovered/Resolved]
  - Acute kidney injury [Recovering/Resolving]
  - Left ventricular hypertrophy [Recovered/Resolved]
  - Ventricular hypokinesia [Recovered/Resolved]
  - Cardiac failure [Recovering/Resolving]
  - Toxicity to various agents [Recovering/Resolving]
  - Heart injury [Recovered/Resolved]
  - Nausea [Unknown]
  - Tachycardia [Recovered/Resolved]
  - Stress cardiomyopathy [Recovered/Resolved]
  - Vomiting [Unknown]
  - Ischaemic hepatitis [Recovering/Resolving]
  - Left atrial enlargement [Unknown]
  - Diarrhoea [Unknown]
